FAERS Safety Report 4703147-5 (Version None)
Quarter: 2005Q2

REPORT INFORMATION
  Report Type: 
  Country: None (occurrence: None)
  Receive Date: 20050629
  Receipt Date: 20050627
  Transmission Date: 20051028
  Serious: Yes (Other)
  Sender: FDA-Public Use
  Company Number: DE-GLAXOSMITHKLINE-D0046934A

PATIENT
  Age: 27 Year
  Sex: Female

DRUGS (1)
  1. LAMICTAL [Suspect]
     Route: 065

REACTIONS (4)
  - ANAEMIA [None]
  - ERYTHEMA [None]
  - PERICARDITIS [None]
  - THROMBOCYTOPENIA [None]
